FAERS Safety Report 4995850-7 (Version None)
Quarter: 2006Q2

REPORT INFORMATION
  Report Type: 
  Country: None (occurrence: None)
  Receive Date: 20060503
  Receipt Date: 20060425
  Transmission Date: 20061013
  Serious: Yes (Death)
  Sender: FDA-Public Use
  Company Number: GBWYE526803APR06

PATIENT
  Age: 34 Year
  Sex: Female

DRUGS (6)
  1. EFFEXOR [Suspect]
     Indication: DEPRESSION
  2. ETHANOL (ETHANOL, , 0) [Suspect]
  3. METHADONE HCL [Suspect]
  4. SALBUTAMOL (SALBUTAMOL) [Concomitant]
  5. DIAZEPAM [Concomitant]
  6. THIAMINE (THIAMINE) [Concomitant]

REACTIONS (5)
  - DRUG INTERACTION [None]
  - ILL-DEFINED DISORDER [None]
  - MEDICATION ERROR [None]
  - RESPIRATORY FAILURE [None]
  - VICTIM OF ABUSE [None]
